FAERS Safety Report 6254949-8 (Version None)
Quarter: 2009Q3

REPORT INFORMATION
  Report Type: 
  Country: None (occurrence: None)
  Receive Date: 20090702
  Receipt Date: 20090622
  Transmission Date: 20100115
  Serious: Yes (Other)
  Sender: FDA-Public Use
  Company Number: BE-PFIZER INC-2009213153

PATIENT
  Age: 59 Year

DRUGS (4)
  1. CHAMPIX [Suspect]
     Indication: SMOKING CESSATION THERAPY
     Dosage: 1 MG, 1X/DAY
     Route: 048
     Dates: start: 20090211, end: 20090403
  2. ADALAT [Concomitant]
     Indication: HYPERTENSION
     Dosage: 30 MG, 1X/DAY
     Route: 048
     Dates: start: 20050221
  3. PROGYNOVA [Concomitant]
     Dosage: 2 MG, 1X/DAY
     Route: 048
     Dates: start: 20050708
  4. DUPHASTON [Concomitant]
     Dosage: 10 MG, 1X/DAY
     Route: 048
     Dates: start: 20060227

REACTIONS (1)
  - VAGINAL HAEMORRHAGE [None]
